FAERS Safety Report 25030612 (Version 1)
Quarter: 2025Q1

REPORT INFORMATION
  Report Type: Spontaneous
  Country: DE (occurrence: DE)
  Receive Date: 20250303
  Receipt Date: 20250303
  Transmission Date: 20250409
  Serious: Yes (Hospitalization, Other)
  Sender: SANDOZ
  Company Number: DE-AMGEN-DEUNI2018067137

PATIENT
  Age: 66 Year
  Sex: Male
  Weight: 63 kg

DRUGS (4)
  1. DEXAMETHASONE [Suspect]
     Active Substance: DEXAMETHASONE
     Indication: Plasma cell myeloma
     Route: 065
     Dates: start: 20180509
  2. KYPROLIS [Suspect]
     Active Substance: CARFILZOMIB
     Indication: Plasma cell myeloma
     Route: 042
     Dates: start: 20180509, end: 20180511
  3. LENALIDOMIDE [Suspect]
     Active Substance: LENALIDOMIDE
     Indication: Plasma cell myeloma
     Route: 065
     Dates: start: 20180509, end: 20180511
  4. METFORMIN [Concomitant]
     Active Substance: METFORMIN HYDROCHLORIDE
     Indication: Diabetes mellitus
     Dosage: 2000 MG, QD (1000 MG, BID)
     Route: 065
     Dates: start: 2008

REACTIONS (2)
  - Acute kidney injury [Not Recovered/Not Resolved]
  - Oliguria [Recovered/Resolved]

NARRATIVE: CASE EVENT DATE: 20180514
